FAERS Safety Report 8433004-2 (Version None)
Quarter: 2012Q2

REPORT INFORMATION
  Report Type: 
  Country: None (occurrence: None)
  Receive Date: 20120613
  Receipt Date: 20120604
  Transmission Date: 20120825
  Serious: Yes (Hospitalization, Other)
  Sender: FDA-Public Use
  Company Number: US-ABBOTT-12P-163-0942376-00

PATIENT
  Age: 50 Year
  Sex: Female

DRUGS (5)
  1. YASMIN [Concomitant]
     Indication: CONTRACEPTION
  2. LEVOTHYROXINE SODIUM [Concomitant]
     Indication: HYPOTHYROIDISM
     Dosage: 0.05MG, 1 TABLET DAILY
  3. RANITIDINE [Concomitant]
     Indication: GASTROOESOPHAGEAL REFLUX DISEASE
  4. AMLODIPINE [Concomitant]
     Indication: HYPERTENSION
     Dosage: 10MG, 1 TABLET DAILY
  5. HUMIRA [Suspect]
     Indication: CROHN'S DISEASE
     Route: 050

REACTIONS (12)
  - DEVICE MALFUNCTION [None]
  - NEUROPATHY PERIPHERAL [None]
  - HYPOAESTHESIA [None]
  - PARAESTHESIA [None]
  - CROHN'S DISEASE [None]
  - INJECTION SITE PAIN [None]
  - INCORRECT DOSE ADMINISTERED [None]
  - INJECTION SITE URTICARIA [None]
  - INJECTION SITE HAEMATOMA [None]
  - INJECTION SITE HAEMORRHAGE [None]
  - INJECTION SITE SWELLING [None]
  - INJECTION SITE ERYTHEMA [None]
